FAERS Safety Report 6752647-5 (Version None)
Quarter: 2010Q2

REPORT INFORMATION
  Report Type: 
  Country: None (occurrence: None)
  Receive Date: 20100602
  Receipt Date: 20100503
  Transmission Date: 20101027
  Serious: Yes (Other)
  Sender: FDA-Public Use
  Company Number: PHHY2010MX28772

PATIENT
  Age: 60 Year
  Sex: Male

DRUGS (3)
  1. ZOMETA [Suspect]
     Indication: NEOPLASM MALIGNANT
     Dosage: 1 VIAL (4 MG/100ML) PER MONTH
     Route: 042
  2. AMARYL [Concomitant]
  3. COCOTEX [Concomitant]

REACTIONS (3)
  - ASTHMA [None]
  - HEADACHE [None]
  - RASH [None]
